FAERS Safety Report 8203948-5 (Version None)
Quarter: 2012Q1

REPORT INFORMATION
  Report Type: 
  Country: None (occurrence: None)
  Receive Date: 20120313
  Receipt Date: 20120301
  Transmission Date: 20120608
  Serious: Yes (Other)
  Sender: FDA-Public Use
  Company Number: US-JNJFOC-20120212393

PATIENT
  Sex: Male

DRUGS (5)
  1. ASACOL [Concomitant]
  2. REMICADE [Suspect]
     Route: 042
     Dates: start: 20101101
  3. CORTICOSTEROID [Concomitant]
  4. MERCAPTOPURINE [Concomitant]
     Dates: end: 20101101
  5. REMICADE [Suspect]
     Indication: CROHN'S DISEASE
     Route: 042
     Dates: start: 20111010, end: 20111018

REACTIONS (1)
  - HEPATOSPLENIC T-CELL LYMPHOMA [None]
